FAERS Safety Report 6672624-2 (Version None)
Quarter: 2010Q2

REPORT INFORMATION
  Report Type: 
  Country: None (occurrence: None)
  Receive Date: 20100406
  Receipt Date: 20100322
  Transmission Date: 20101027
  Serious: Yes (Hospitalization)
  Sender: FDA-Public Use
  Company Number: 2010EU001119

PATIENT
  Age: 3 Year
  Sex: Male

DRUGS (4)
  1. TACROLIMUS [Suspect]
     Indication: DERMATITIS ATOPIC
     Dosage: 0.1 %, UID/QD,
     Dates: start: 20090501, end: 20091120
  2. TACROLIMUS [Suspect]
     Indication: DERMATITIS ATOPIC
     Dosage: 0.1 %, UID/QD,
     Dates: start: 20091127
  3. HYDROCORTONE [Concomitant]
  4. FUCIBET (BETAMETHASONE VALERATE, FUSIDIC ACID) [Concomitant]

REACTIONS (2)
  - ECZEMA [None]
  - INFECTION [None]
